FAERS Safety Report 18527063 (Version 1)
Quarter: 2020Q4

REPORT INFORMATION
  Report Type: Spontaneous
  Country: US (occurrence: US)
  Receive Date: 20201120
  Receipt Date: 20201120
  Transmission Date: 20210114
  Serious: Yes (Hospitalization)
  Sender: FDA-Public Use
  Company Number: None

PATIENT
  Age: 53 Year
  Sex: Female

DRUGS (21)
  1. COLACE [Concomitant]
     Active Substance: DOCUSATE SODIUM
  2. VITAMIN D [Concomitant]
     Active Substance: VITAMIN D NOS
  3. DULOXETINE. [Concomitant]
     Active Substance: DULOXETINE
  4. BACLOFEN. [Concomitant]
     Active Substance: BACLOFEN
  5. SINGULAIR [Concomitant]
     Active Substance: MONTELUKAST SODIUM
  6. MONTELUKAST [Concomitant]
     Active Substance: MONTELUKAST SODIUM
  7. RANITIDINE. [Concomitant]
     Active Substance: RANITIDINE
  8. CYMBALTA [Concomitant]
     Active Substance: DULOXETINE HYDROCHLORIDE
  9. LISINOPRIL. [Concomitant]
     Active Substance: LISINOPRIL
  10. ATORVASTATIN [Concomitant]
     Active Substance: ATORVASTATIN
  11. DALFAMPRIDINE. [Suspect]
     Active Substance: DALFAMPRIDINE
     Indication: MULTIPLE SCLEROSIS
     Route: 048
     Dates: start: 20160826
  12. GABAPENTIN. [Concomitant]
     Active Substance: GABAPENTIN
  13. IRON [Concomitant]
     Active Substance: IRON
  14. ADVAIR HFA [Concomitant]
     Active Substance: FLUTICASONE PROPIONATE\SALMETEROL XINAFOATE
  15. IBUPROFEN. [Concomitant]
     Active Substance: IBUPROFEN
  16. TROSPIUM [Concomitant]
     Active Substance: TROSPIUM
  17. METAXALONE. [Concomitant]
     Active Substance: METAXALONE
  18. HYDROCHLOROTHIAZIDE. [Concomitant]
     Active Substance: HYDROCHLOROTHIAZIDE
  19. AMITRIPTYLINE [Concomitant]
     Active Substance: AMITRIPTYLINE
  20. ESTRADIOL. [Concomitant]
     Active Substance: ESTRADIOL
  21. WIXELA INHUB [Concomitant]
     Active Substance: FLUTICASONE PROPIONATE\SALMETEROL XINAFOATE

REACTIONS (2)
  - Pain in extremity [None]
  - Multiple sclerosis [None]

NARRATIVE: CASE EVENT DATE: 20201015
